FAERS Safety Report 8382772 (Version 6)
Quarter: 2013Q2

REPORT INFORMATION
  Report Type: Spontaneous
  Country: US (occurrence: US)
  Receive Date: 20120201
  Receipt Date: 20130425
  Transmission Date: 20140414
  Serious: Yes (Other)
  Sender: FDA-Public Use
  Company Number: US-ROCHE-1035268

PATIENT
  Sex: Male

DRUGS (1)
  1. ACCUTANE [Suspect]
     Indication: PRODUCT USED FOR UNKNOWN INDICATION
     Route: 048
     Dates: start: 19970722

REACTIONS (6)
  - Inflammatory bowel disease [Unknown]
  - Anxiety [Unknown]
  - Crohn^s disease [Unknown]
  - Anal fistula [Unknown]
  - Anal abscess [Unknown]
  - Rectal polyp [Unknown]
